FAERS Safety Report 8116988-1 (Version None)
Quarter: 2012Q1

REPORT INFORMATION
  Report Type: 
  Country: None (occurrence: None)
  Receive Date: 20120206
  Receipt Date: 20120126
  Transmission Date: 20120608
  Serious: Yes (Hospitalization, Other)
  Sender: FDA-Public Use
  Company Number: DE-ROCHE-GNE315926

PATIENT
  Sex: Male

DRUGS (15)
  1. XOLAIR [Suspect]
     Route: 058
     Dates: start: 20110210
  2. FLUTICASONE PROPIONATE/SALMETEROL [Concomitant]
  3. XOLAIR [Suspect]
     Indication: ASTHMA
     Dosage: 300 MG, 1/MONTH
     Route: 058
     Dates: start: 20110113
  4. XOLAIR [Suspect]
     Route: 058
     Dates: start: 20110310
  5. IBUPROFEN [Concomitant]
     Indication: PRODUCT USED FOR UNKNOWN INDICATION
     Dates: start: 20110101
  6. LEVOCETIRIZINE DIHYDROCHLORIDE [Concomitant]
  7. PREDNISOLONE [Concomitant]
     Dosage: TREATMENT
     Dates: start: 20110310
  8. SPIRIVA [Concomitant]
  9. ACETYLCYSTEINE [Concomitant]
  10. AMOXICILLIN NOS [Concomitant]
     Dates: end: 20110324
  11. FLUTICASONE PROPIONATE/SALMETEROL [Concomitant]
  12. MOMETASONE FUROATE [Concomitant]
  13. MONTELUKAST [Concomitant]
  14. PREDNISOLONE [Concomitant]
  15. CINEOLE [Concomitant]

REACTIONS (13)
  - NEUTROPHIL COUNT INCREASED [None]
  - HEPATOMEGALY [None]
  - ERYTHEMA [None]
  - HYPERHIDROSIS [None]
  - BLOOD IMMUNOGLOBULIN E INCREASED [None]
  - CHILLS [None]
  - EYELID OEDEMA [None]
  - EOSINOPHIL COUNT INCREASED [None]
  - ANAPHYLACTOID REACTION [None]
  - MUSCLE SPASMS [None]
  - SWELLING FACE [None]
  - DYSPNOEA [None]
  - CIRCUMORAL OEDEMA [None]
